FAERS Safety Report 4839814-2 (Version None)
Quarter: 2005Q4

REPORT INFORMATION
  Report Type: 
  Country: None (occurrence: None)
  Receive Date: 20051125
  Receipt Date: 20051114
  Transmission Date: 20060501
  Serious: Yes (Hospitalization, Other)
  Sender: FDA-Public Use
  Company Number: 2005P1000547

PATIENT
  Age: 56 Year
  Sex: Male
  Weight: 98 kg

DRUGS (10)
  1. RETEPLASE (RETEPLASE) [Suspect]
     Indication: ACUTE MYOCARDIAL INFARCTION
  2. ABCIXIMAB (ABCIXIMAB) [Suspect]
  3. ASCAL [Concomitant]
  4. ACETYLSALICYLATE [Concomitant]
  5. CALCIUM GLUCONATE [Concomitant]
  6. SIMVASTATIN [Concomitant]
  7. METOPROLOL TARTRATE [Concomitant]
  8. METFORMIN [Concomitant]
  9. CLOPIDOGREL [Concomitant]
  10. GLIBENCLAMIDE [Concomitant]

REACTIONS (1)
  - CORONARY ARTERY DISEASE [None]
